FAERS Safety Report 5530266-6 (Version None)
Quarter: 2007Q4

REPORT INFORMATION
  Report Type: 
  Country: None (occurrence: None)
  Receive Date: 20071130
  Receipt Date: 20070521
  Transmission Date: 20080405
  Serious: No
  Sender: FDA-Public Use
  Company Number: A0652129A

PATIENT
  Age: 43 Year
  Sex: Female

DRUGS (1)
  1. AUGMENTIN '250' [Suspect]
     Indication: INFECTION PROPHYLAXIS
     Dosage: 1000MG TWICE PER DAY
     Route: 048
     Dates: start: 20070514

REACTIONS (1)
  - GENITAL HERPES [None]
